FAERS Safety Report 12118178 (Version 1)
Quarter: 2016Q1

REPORT INFORMATION
  Report Type: Spontaneous
  Country: GB (occurrence: GB)
  Receive Date: 20160226
  Receipt Date: 20160226
  Transmission Date: 20160526
  Serious: Yes (Other)
  Sender: FDA-Public Use
  Company Number: GB-ASTRAZENECA-2016SE18102

PATIENT
  Age: 73 Year
  Sex: Female
  Weight: 63 kg

DRUGS (17)
  1. SYMBICORT [Concomitant]
     Active Substance: BUDESONIDE\FORMOTEROL FUMARATE DIHYDRATE
  2. CALCICHEW D3 FORTE [Concomitant]
     Active Substance: CALCIUM\CHOLECALCIFEROL
  3. ALENDRONATE SODIUM. [Concomitant]
     Active Substance: ALENDRONATE SODIUM
  4. MINOCYCLINE [Concomitant]
     Active Substance: MINOCYCLINE\MINOCYCLINE HYDROCHLORIDE
  5. AMLODIPINE [Concomitant]
     Active Substance: AMLODIPINE BESYLATE
  6. OMEPRAZOLE. [Concomitant]
     Active Substance: OMEPRAZOLE
  7. WARFARIN [Concomitant]
     Active Substance: WARFARIN
     Indication: PULMONARY EMBOLISM
  8. MEROPENEM. [Suspect]
     Active Substance: MEROPENEM
     Indication: PSEUDOMONAS INFECTION
     Dosage: 500, THREE TIMES A DAY
     Route: 042
     Dates: start: 20160207, end: 20160207
  9. MEROPENEM. [Suspect]
     Active Substance: MEROPENEM
     Indication: PSEUDOMONAS INFECTION
     Route: 042
     Dates: start: 20160208, end: 20160212
  10. SERTRALINE [Concomitant]
     Active Substance: SERTRALINE HYDROCHLORIDE
  11. SODIUM CHLORIDE. [Concomitant]
     Active Substance: SODIUM CHLORIDE
  12. PARACETAMOL [Concomitant]
     Active Substance: ACETAMINOPHEN
  13. IPRATROPIUM BROMIDE. [Concomitant]
     Active Substance: IPRATROPIUM BROMIDE
  14. TIOTROPIUM [Concomitant]
     Active Substance: TIOTROPIUM
  15. ALGESAL [Concomitant]
     Active Substance: DIETHYLAMINE SALICYLATE
  16. PREDNISOLONE. [Concomitant]
     Active Substance: PREDNISOLONE
  17. SALBUTAMOL [Concomitant]
     Active Substance: ALBUTEROL

REACTIONS (8)
  - Lymphopenia [Not Recovered/Not Resolved]
  - Decreased appetite [Unknown]
  - Skin disorder [Unknown]
  - Leukopenia [Not Recovered/Not Resolved]
  - Monocytopenia [Not Recovered/Not Resolved]
  - Neutropenia [Not Recovered/Not Resolved]
  - Nausea [Unknown]
  - Vomiting [Unknown]

NARRATIVE: CASE EVENT DATE: 20160211
